FAERS Safety Report 11556000 (Version 1)
Quarter: 2015Q3

REPORT INFORMATION
  Report Type: Spontaneous
  Country: US (occurrence: US)
  Receive Date: 20150925
  Receipt Date: 20150925
  Transmission Date: 20151125
  Serious: Yes (Other)
  Sender: FDA-Public Use
  Company Number: US-BOIRON INC.-2015BOR00018

PATIENT
  Age: 45 Year
  Sex: Female
  Weight: 52.15 kg

DRUGS (4)
  1. MULTIVITAMINS BY VITA MEDICA [Concomitant]
     Dosage: UNK, 2X/DAY
     Dates: start: 201506
  2. BUPROPION. [Concomitant]
     Active Substance: BUPROPION
     Dosage: 300 MG, AT NIGHT
     Dates: start: 2013
  3. ARNICARE [Suspect]
     Active Substance: ARNICA MONTANA
     Indication: POST PROCEDURAL SWELLING
     Dosage: DIME-SIZED AMOUNT, ONCE
     Route: 061
     Dates: start: 20150728, end: 20150728
  4. TRAZODONE [Concomitant]
     Active Substance: TRAZODONE HYDROCHLORIDE
     Indication: DEPRESSION
     Dosage: 50 MG, AT NIGHT
     Dates: start: 2014

REACTIONS (9)
  - Asthenia [Unknown]
  - Hypoaesthesia [Unknown]
  - Burns second degree [Recovered/Resolved]
  - Skin exfoliation [Unknown]
  - Chemical injury [Recovering/Resolving]
  - Mobility decreased [Unknown]
  - Skin scar contracture [Unknown]
  - Skin tightness [Unknown]
  - Sensory loss [Unknown]

NARRATIVE: CASE EVENT DATE: 2015
